FAERS Safety Report 15573331 (Version 2)
Quarter: 2018Q4

REPORT INFORMATION
  Report Type: Other
  Country: CZ (occurrence: CZ)
  Receive Date: 20181101
  Receipt Date: 20181108
  Transmission Date: 20190205
  Serious: Yes (Hospitalization, Other)
  Sender: FDA-Public Use
  Company Number: CZ-APOTEX-2018AP023444

PATIENT
  Age: 69 Year

DRUGS (2)
  1. METFORMIN [Suspect]
     Active Substance: METFORMIN HYDROCHLORIDE
     Indication: PRODUCT USED FOR UNKNOWN INDICATION
     Dosage: UNK
     Route: 048
  2. METFORMIN [Suspect]
     Active Substance: METFORMIN HYDROCHLORIDE
     Dosage: UNK
     Route: 065

REACTIONS (16)
  - Blood pH decreased [Unknown]
  - Lactic acidosis [Unknown]
  - Blood bicarbonate decreased [Unknown]
  - PCO2 decreased [Unknown]
  - Blood sodium decreased [Recovering/Resolving]
  - Base excess decreased [Unknown]
  - Hypovolaemia [Unknown]
  - Lactic acidosis [Unknown]
  - PO2 increased [Unknown]
  - Acute kidney injury [Recovering/Resolving]
  - Hypocapnia [Unknown]
  - Blood chloride decreased [Recovering/Resolving]
  - Toxicity to various agents [Unknown]
  - Blood creatinine increased [Recovered/Resolved]
  - Gastrointestinal disorder [Unknown]
  - Anion gap increased [Unknown]

NARRATIVE: CASE EVENT DATE: 2009
